FAERS Safety Report 23791608 (Version 1)
Quarter: 2024Q2

REPORT INFORMATION
  Report Type: Spontaneous
  Country: US (occurrence: US)
  Receive Date: 20240429
  Receipt Date: 20240429
  Transmission Date: 20240716
  Serious: Yes (Disabling, Other)
  Sender: FDA-Public Use
  Company Number: US-NOVOPROD-1209156

PATIENT
  Sex: Female

DRUGS (1)
  1. RYBELSUS [Suspect]
     Active Substance: SEMAGLUTIDE
     Indication: Glucose tolerance impaired
     Dosage: UNK
     Route: 048

REACTIONS (11)
  - Disability [Unknown]
  - Knee operation [Unknown]
  - Asthma [Unknown]
  - Thyroid disorder [Unknown]
  - Back pain [Unknown]
  - Arthritis [Unknown]
  - Osteoporosis [Unknown]
  - Arthralgia [Unknown]
  - Pain in extremity [Unknown]
  - Hypersensitivity [Unknown]
  - Product use in unapproved indication [Unknown]
